FAERS Safety Report 7425373-7 (Version None)
Quarter: 2011Q2

REPORT INFORMATION
  Report Type: 
  Country: None (occurrence: None)
  Receive Date: 20110420
  Receipt Date: 20110413
  Transmission Date: 20111010
  Serious: Yes (Death, Other)
  Sender: FDA-Public Use
  Company Number: US-AMGEN-USASP2011020487

PATIENT
  Age: 82 Year
  Sex: Female

DRUGS (2)
  1. NPLATE [Suspect]
     Indication: IDIOPATHIC THROMBOCYTOPENIC PURPURA
  2. CORTICOSTEROIDS [Concomitant]

REACTIONS (4)
  - RENAL FAILURE CHRONIC [None]
  - DEATH [None]
  - HYDRONEPHROSIS [None]
  - DRUG INEFFECTIVE [None]
